FAERS Safety Report 9234473 (Version 1)
Quarter: 2013Q2

REPORT INFORMATION
  Report Type: Spontaneous
  Country: US (occurrence: US)
  Receive Date: 20130416
  Receipt Date: 20130416
  Transmission Date: 20140414
  Serious: No
  Sender: FDA-Public Use
  Company Number: US-BANPHARM-20120179

PATIENT
  Sex: Female

DRUGS (1)
  1. ALEVE LIQUID GELS 220 MG [Suspect]
     Dosage: 1 DF, ONCE,
     Route: 048
     Dates: start: 20120915, end: 20120915

REACTIONS (3)
  - Glossodynia [Not Recovered/Not Resolved]
  - Hypoaesthesia oral [Not Recovered/Not Resolved]
  - Glossitis [Not Recovered/Not Resolved]
